FAERS Safety Report 8060337-4 (Version None)
Quarter: 2012Q1

REPORT INFORMATION
  Report Type: 
  Country: None (occurrence: None)
  Receive Date: 20120120
  Receipt Date: 20111109
  Transmission Date: 20120608
  Serious: No
  Sender: FDA-Public Use
  Company Number: US-NOVEN-11US003589

PATIENT
  Sex: Male

DRUGS (1)
  1. FENTANYL [Suspect]
     Indication: PAIN
     Dosage: 25 UG/HR Q 72 HOURS
     Route: 062
     Dates: start: 20111106

REACTIONS (3)
  - COLD SWEAT [None]
  - DIZZINESS [None]
  - SOMNOLENCE [None]
